FAERS Safety Report 24837532 (Version 3)
Quarter: 2025Q1

REPORT INFORMATION
  Report Type: Spontaneous
  Country: CA (occurrence: CA)
  Receive Date: 20250113
  Receipt Date: 20250307
  Transmission Date: 20250408
  Serious: Yes (Other)
  Sender: PFIZER
  Company Number: CA-PFIZER INC-202200995836

PATIENT
  Age: 25 Year
  Sex: Female

DRUGS (4)
  1. ABRILADA [Suspect]
     Active Substance: ADALIMUMAB-AFZB
     Indication: Central serous chorioretinopathy
     Route: 058
     Dates: start: 20240724, end: 2024
  2. ABRILADA [Suspect]
     Active Substance: ADALIMUMAB-AFZB
     Route: 058
     Dates: start: 2024
  3. CORTISONE [Concomitant]
     Active Substance: CORTISONE
     Route: 065
  4. MYCOPHENOLIC ACID [Concomitant]
     Active Substance: MYCOPHENOLIC ACID
     Dosage: 1000 MG, 2X/DAY
     Route: 048
     Dates: start: 20220622

REACTIONS (3)
  - Central serous chorioretinopathy [Unknown]
  - Disease recurrence [Unknown]
  - Off label use [Unknown]
